FAERS Safety Report 15110037 (Version 2)
Quarter: 2018Q4

REPORT INFORMATION
  Report Type: Spontaneous
  Country: DE (occurrence: DE)
  Receive Date: 20180705
  Receipt Date: 20181114
  Transmission Date: 20190204
  Serious: Yes (Life-Threatening)
  Sender: FDA-Public Use
  Company Number: PHHY2018GB035830

PATIENT
  Age: 83 Year
  Sex: Male
  Weight: 70 kg

DRUGS (23)
  1. ADALAT [Suspect]
     Active Substance: NIFEDIPINE
     Indication: HYPERTENSION
     Dosage: 10 MG, QD
     Route: 048
     Dates: start: 20180226, end: 20180226
  2. TEBONIN [Concomitant]
     Active Substance: GINKGO
     Indication: CARDIOVASCULAR DISORDER
     Dosage: 60 GTT, QD
     Route: 048
     Dates: start: 19980224
  3. DEXAMETHASONE. [Concomitant]
     Active Substance: DEXAMETHASONE
     Indication: CATARACT OPERATION
     Dosage: 5 GTT, QD
     Route: 047
  4. SPASURET [Concomitant]
     Indication: PROSTATIC OPERATION
     Dosage: UNK
     Route: 048
  5. FRAGMIN P [Suspect]
     Active Substance: DALTEPARIN SODIUM
     Indication: THROMBOSIS PROPHYLAXIS
     Dosage: 1 DF, QD
     Route: 058
     Dates: start: 19980225
  6. NOCTAMID [Suspect]
     Active Substance: LORMETAZEPAM
     Indication: SLEEP DISORDER
     Dosage: 1 DF, QD
     Route: 048
     Dates: start: 19980226, end: 19980226
  7. TRAMAL LONG [Suspect]
     Active Substance: TRAMADOL
     Indication: PAIN
     Dosage: 100 MG, UNK
     Route: 048
     Dates: start: 19980209, end: 19980223
  8. AMLODIPINE [Concomitant]
     Active Substance: AMLODIPINE BESYLATE
     Indication: HYPERTENSION
     Dosage: 10 MG, QD
     Route: 048
  9. VITAMINS NOS [Concomitant]
     Active Substance: VITAMINS
     Indication: VITAMIN SUPPLEMENTATION
     Dosage: 1 DF, QD
     Route: 048
     Dates: end: 19980223
  10. NOVODIGAL (.BETA.-ACETYLDIGOXIN) [Concomitant]
     Active Substance: .BETA.-ACETYLDIGOXIN
     Indication: HYPERTENSION
     Dosage: 0.2 MG, QD
     Route: 048
  11. GINKOBIL [Concomitant]
     Indication: CARDIOVASCULAR DISORDER
     Dosage: 1 DF, QD
     Route: 048
     Dates: start: 19980223, end: 19980223
  12. ANTRA [Concomitant]
     Active Substance: OMEPRAZOLE
     Indication: PROPHYLAXIS
     Dosage: UNK
     Route: 048
  13. EUGLUCON N [Suspect]
     Active Substance: GLYBURIDE
     Indication: DIABETES MELLITUS
     Dosage: 2 DF, QD
     Route: 048
  14. FENTANYL. [Suspect]
     Active Substance: FENTANYL
     Indication: ANAESTHESIA
     Dosage: 1 DF, QD
     Route: 042
     Dates: start: 19980226, end: 19980226
  15. CIPROBAY [Suspect]
     Active Substance: CIPROFLOXACIN
     Indication: INFECTION PROPHYLAXIS
     Dosage: 400 MG, QD
     Route: 042
     Dates: start: 19980226, end: 19980226
  16. NOVALGIN (METAMIZOLE SODIUM) [Suspect]
     Active Substance: METAMIZOLE SODIUM
     Indication: PAIN
     Dosage: 40 GTT, QD
     Route: 048
     Dates: start: 19980226, end: 19980226
  17. TRAMAL LONG [Suspect]
     Active Substance: TRAMADOL
     Dosage: 100 MG, QD
     Route: 048
     Dates: start: 19980223
  18. VITAMIN C [Concomitant]
     Active Substance: ASCORBIC ACID
     Indication: VITAMIN SUPPLEMENTATION
     Dosage: 1 DF, QD
     Route: 048
     Dates: start: 19980223
  19. BACTRIM [Suspect]
     Active Substance: SULFAMETHOXAZOLE\TRIMETHOPRIM
     Indication: INFECTION PROPHYLAXIS
     Dosage: 1 DF, QD
     Route: 048
     Dates: start: 19980226, end: 19980226
  20. CO-DIOVAN [Suspect]
     Active Substance: HYDROCHLOROTHIAZIDE\VALSARTAN
     Indication: HYPERTENSION
     Dosage: 160 MG, QD
     Route: 048
  21. ASPIRIN. [Suspect]
     Active Substance: ASPIRIN
     Indication: THROMBOSIS PROPHYLAXIS
     Dosage: 100 MG, QD
     Route: 048
     Dates: start: 19980223
  22. HYPERICUM [Concomitant]
     Active Substance: ST. JOHN^S WORT
     Indication: AGITATION
     Dosage: 1 DF, UNK
     Route: 048
  23. SPASURET [Concomitant]
     Route: 048

REACTIONS (6)
  - Toxic epidermal necrolysis [Recovering/Resolving]
  - Skin lesion [Recovering/Resolving]
  - Pruritus [Recovering/Resolving]
  - Lip erosion [Recovering/Resolving]
  - Ocular hyperaemia [Recovering/Resolving]
  - Pyrexia [Recovering/Resolving]

NARRATIVE: CASE EVENT DATE: 19980227
